FAERS Safety Report 8659997 (Version 2)
Quarter: 2013Q1

REPORT INFORMATION
  Report Type: Spontaneous
  Country: US (occurrence: US)
  Receive Date: 20120711
  Receipt Date: 20130206
  Transmission Date: 20140127
  Serious: Yes (Other)
  Sender: FDA-Public Use
  Company Number: US-ELI_LILLY_AND_COMPANY-US201207002332

PATIENT
  Sex: Female

DRUGS (13)
  1. FORTEO [Suspect]
     Indication: OSTEOPOROSIS
     Dosage: 20 UG, QD
     Dates: start: 201107
  2. FORTEO [Suspect]
     Dosage: UNK
     Dates: start: 20110901
  3. METOPROLOL [Concomitant]
     Indication: HYPERTENSION
     Dosage: 25 MG, BID
  4. LISINOPRIL [Concomitant]
     Indication: HYPERTENSION
     Dosage: 2.5 MG, QD
  5. OMEPRAZOLE [Concomitant]
     Indication: GASTROOESOPHAGEAL REFLUX DISEASE
     Dosage: 20 MG, QD
  6. ZOLPIDEM [Concomitant]
     Indication: INSOMNIA
     Dosage: UNK, PRN
  7. CLONAZEPAM [Concomitant]
     Indication: NERVOUSNESS
     Dosage: UNK, PRN
  8. CALCIUM [Concomitant]
     Dosage: 600 MG, BID
  9. MULTIVITAMIN [Concomitant]
     Dosage: UNK, QD
  10. PROBIOTICS [Concomitant]
     Dosage: UNK, QD
  11. ASPIRIN [Concomitant]
     Dosage: 81 MG, QD
  12. CITRACAL [Concomitant]
     Dosage: UNK, QD
  13. FISH OIL [Concomitant]
     Dosage: 1000 MG, BID

REACTIONS (4)
  - Malignant melanoma [Unknown]
  - Lung neoplasm malignant [Recovered/Resolved]
  - Brain cancer metastatic [Unknown]
  - Tremor [Not Recovered/Not Resolved]
